FAERS Safety Report 9999025 (Version 1)
Quarter: 2014Q1

REPORT INFORMATION
  Report Type: Report from Study
  Country: MX (occurrence: MX)
  Receive Date: 20140312
  Receipt Date: 20140312
  Transmission Date: 20141002
  Serious: Yes (Other)
  Sender: FDA-Public Use
  Company Number: MX-ROCHE-1361974

PATIENT
  Age: 52 Year
  Sex: Female
  Weight: 82 kg

DRUGS (5)
  1. XELODA [Suspect]
     Indication: COLORECTAL CANCER
     Route: 065
  2. AVASTIN [Suspect]
     Indication: COLORECTAL CANCER
     Dosage: PLANNED CYCLES OF TREATMENT: 4.
     Route: 065
  3. LEUCOVORIN [Concomitant]
     Indication: COLORECTAL CANCER
  4. FLUORACILO [Concomitant]
     Indication: COLORECTAL CANCER
  5. IRINOTECAN [Concomitant]

REACTIONS (1)
  - Disease progression [Unknown]
